FAERS Safety Report 9999555 (Version 1)
Quarter: 2014Q1

REPORT INFORMATION
  Report Type: Spontaneous
  Country: US (occurrence: None)
  Receive Date: 20140311
  Receipt Date: 20140311
  Transmission Date: 20141002
  Serious: Yes (Hospitalization)
  Sender: FDA-Public Use
  Company Number: None

PATIENT
  Age: 81 Year
  Sex: Male
  Weight: 116.2 kg

DRUGS (2)
  1. LISINOPRIL [Suspect]
     Route: 048
     Dates: start: 20130418, end: 20130904
  2. AMOXICILLIN/CLAVULANATE [Suspect]
     Route: 048
     Dates: start: 20130825, end: 20130904

REACTIONS (1)
  - Angioedema [None]
